FAERS Safety Report 13538938 (Version 1)
Quarter: 2017Q2

REPORT INFORMATION
  Report Type: Spontaneous
  Country: US (occurrence: US)
  Receive Date: 20170511
  Receipt Date: 20170511
  Transmission Date: 20170830
  Serious: Yes (Other)
  Sender: FDA-Public Use
  Company Number: None

PATIENT
  Age: 34 Year
  Sex: Female
  Weight: 56 kg

DRUGS (1)
  1. LINEZOLID 600 MG [Suspect]
     Active Substance: LINEZOLID
     Indication: SUBDURAL EMPYEMA
     Route: 042
     Dates: start: 20170508, end: 20170510

REACTIONS (5)
  - Rash [None]
  - Headache [None]
  - Irritability [None]
  - Swelling face [None]
  - Restlessness [None]

NARRATIVE: CASE EVENT DATE: 20170510
